FAERS Safety Report 21498063 (Version 2)
Quarter: 2022Q4

REPORT INFORMATION
  Report Type: Spontaneous
  Country: US (occurrence: US)
  Receive Date: 20221024
  Receipt Date: 20221111
  Transmission Date: 20230112
  Serious: No
  Sender: FDA-Public Use
  Company Number: US-Calliditas-2022CAL00399

PATIENT
  Age: 68 Year
  Sex: Female

DRUGS (10)
  1. TARPEYO [Suspect]
     Active Substance: BUDESONIDE
     Indication: IgA nephropathy
     Dosage: 16MG (4MG CAPSULES) ONCE DAILY
     Route: 048
     Dates: start: 20220914
  2. CLONIDINE [Concomitant]
     Active Substance: CLONIDINE
     Indication: Hot flush
     Dates: start: 20220808, end: 202209
  3. JANUVIA [Concomitant]
     Active Substance: SITAGLIPTIN PHOSPHATE
  4. CARVEDILOL [Concomitant]
     Active Substance: CARVEDILOL
     Indication: Chronic kidney disease
  5. ALLOPURINOL [Concomitant]
     Active Substance: ALLOPURINOL
     Indication: Prophylaxis
  6. EZETIMIBE [Concomitant]
     Active Substance: EZETIMIBE
  7. FISH OIL [Concomitant]
     Active Substance: FISH OIL
  8. CHOLECALCIFEROL [Concomitant]
     Active Substance: CHOLECALCIFEROL
  9. PEPCID [Concomitant]
     Active Substance: FAMOTIDINE
  10. STELARA [Concomitant]
     Active Substance: USTEKINUMAB
     Indication: Psoriasis

REACTIONS (4)
  - Myalgia [Not Recovered/Not Resolved]
  - Dysuria [Not Recovered/Not Resolved]
  - Spondylitis [Not Recovered/Not Resolved]
  - Urinary incontinence [Not Recovered/Not Resolved]

NARRATIVE: CASE EVENT DATE: 20220918
